FAERS Safety Report 6145663-8 (Version None)
Quarter: 2009Q2

REPORT INFORMATION
  Report Type: 
  Country: None (occurrence: None)
  Receive Date: 20090407
  Receipt Date: 20090326
  Transmission Date: 20091009
  Serious: Yes (Death)
  Sender: FDA-Public Use
  Company Number: FI-JNJFOC-20090307064

PATIENT
  Sex: Male

DRUGS (5)
  1. REMICADE [Suspect]
     Indication: PSORIASIS
     Dosage: TOTAL OF 6 INFUSIONS
     Route: 042
  2. INDOMETIN [Concomitant]
     Route: 048
  3. LEVOZIN [Concomitant]
     Route: 048
  4. PANADOL FORTE [Concomitant]
     Route: 048
  5. IMOVANE [Concomitant]
     Route: 048

REACTIONS (3)
  - CORONARY ARTERY DISEASE [None]
  - HEPATIC CIRRHOSIS [None]
  - MENINGITIS [None]
